FAERS Safety Report 19948416 (Version 1)
Quarter: 2021Q4

REPORT INFORMATION
  Report Type: Spontaneous
  Country: DE (occurrence: DE)
  Receive Date: 20211013
  Receipt Date: 20211013
  Transmission Date: 20220303
  Serious: Yes (Hospitalization)
  Sender: FDA-Public Use
  Company Number: DE-ALKEM LABORATORIES LIMITED-DE-ALKEM-2021-06194

PATIENT
  Age: 42 Year
  Sex: Female

DRUGS (1)
  1. CEFUROXIME AXETIL [Suspect]
     Active Substance: CEFUROXIME AXETIL
     Indication: Product used for unknown indication
     Dosage: 500 MILLIGRAM, TOTAL
     Route: 065

REACTIONS (6)
  - Paraesthesia oral [Unknown]
  - Hypersensitivity [Unknown]
  - Dysgeusia [Unknown]
  - Erythema [Unknown]
  - Vomiting [Unknown]
  - Lip swelling [Unknown]

NARRATIVE: CASE EVENT DATE: 20210805
